FAERS Safety Report 11989800 (Version 1)
Quarter: 2016Q1

REPORT INFORMATION
  Report Type: Spontaneous
  Country: US (occurrence: US)
  Receive Date: 20160202
  Receipt Date: 20160202
  Transmission Date: 20160526
  Serious: No
  Sender: FDA-Public Use
  Company Number: US-ROCHE-1620559

PATIENT
  Age: 9 Year
  Sex: Female

DRUGS (8)
  1. VITAMIN D3 [Concomitant]
     Active Substance: CHOLECALCIFEROL
     Dosage: 1000U
     Route: 048
  2. L-CARNITINE [Concomitant]
     Active Substance: LEVOCARNITINE
     Route: 048
  3. OMEPRAZOLE. [Concomitant]
     Active Substance: OMEPRAZOLE
     Route: 065
  4. NUTROPIN AQ [Suspect]
     Active Substance: SOMATROPIN
     Indication: GROWTH HORMONE DEFICIENCY
     Route: 058
     Dates: start: 20150405
  5. UROCIT-K [Concomitant]
     Active Substance: POTASSIUM CITRATE
     Dosage: 10 MEQ
     Route: 065
  6. CYSTEAMINE BITARTRATE [Concomitant]
     Active Substance: CYSTEAMINE BITARTRATE
     Indication: CHRONIC KIDNEY DISEASE
     Route: 048
     Dates: start: 20130707
  7. LISINOPRIL. [Concomitant]
     Active Substance: LISINOPRIL
     Route: 048
  8. POTASSIUM CHLORIDE. [Concomitant]
     Active Substance: POTASSIUM CHLORIDE
     Dosage: 10 MEQ
     Route: 048

REACTIONS (1)
  - Nausea [Not Recovered/Not Resolved]
